FAERS Safety Report 8924618 (Version 1)
Quarter: 2012Q4

REPORT INFORMATION
  Report Type: 
  Country: CO (occurrence: CO)
  Receive Date: 20121126
  Receipt Date: 20121126
  Transmission Date: 20130627
  Serious: Yes (Death)
  Sender: FDA-Public Use
  Company Number: CO-ASTRAZENECA-2012SE88678

PATIENT
  Age: 109 Day
  Sex: Female
  Weight: 3 kg

DRUGS (3)
  1. SYNAGIS [Suspect]
     Indication: ANTIVIRAL PROPHYLAXIS
     Route: 030
     Dates: start: 20120911, end: 20121016
  2. LANITOP [Concomitant]
  3. DOMPERIDONE [Concomitant]

REACTIONS (1)
  - Cardiac failure [Fatal]
